FAERS Safety Report 12637082 (Version 1)
Quarter: 2016Q3

REPORT INFORMATION
  Report Type: Spontaneous
  Country: US (occurrence: US)
  Receive Date: 20160809
  Receipt Date: 20160809
  Transmission Date: 20161109
  Serious: No
  Sender: FDA-Public Use
  Company Number: US-BEH-2015052365

PATIENT
  Sex: Male
  Weight: 75 kg

DRUGS (20)
  1. DEXTROSE. [Concomitant]
     Active Substance: DEXTROSE
  2. DHEA [Concomitant]
     Active Substance: PRASTERONE
  3. FLORASTOR [Concomitant]
     Active Substance: SACCHAROMYCES CEREVISIAE
  4. HEPARIN [Concomitant]
     Active Substance: HEPARIN SODIUM
  5. MINOCYCLINE [Concomitant]
     Active Substance: MINOCYCLINE\MINOCYCLINE HYDROCHLORIDE
  6. OTHER MINERAL SUPPLEMENTS [Concomitant]
     Active Substance: MINERALS
  7. SELENIUM [Concomitant]
     Active Substance: SELENIUM
  8. EPIPEN [Concomitant]
     Active Substance: EPINEPHRINE
  9. FLOMAX [Concomitant]
     Active Substance: TAMSULOSIN HYDROCHLORIDE
  10. PRIVIGEN [Suspect]
     Active Substance: HUMAN IMMUNOGLOBULIN G
     Dosage: 5 GM VIALS
     Route: 042
  11. PRIVIGEN [Suspect]
     Active Substance: HUMAN IMMUNOGLOBULIN G
     Dosage: 10 GM VIALS
     Route: 042
  12. NORMAL SALINE [Concomitant]
     Active Substance: SODIUM CHLORIDE
  13. PRIVIGEN [Suspect]
     Active Substance: HUMAN IMMUNOGLOBULIN G
     Indication: NEUROPATHY PERIPHERAL
     Dosage: 20 GM VIALS
     Route: 042
  14. ZINC [Concomitant]
     Active Substance: ZINC\ZINC CHLORIDE
  15. SODIUM CHLORIDE. [Concomitant]
     Active Substance: SODIUM CHLORIDE
  16. VITAMIN B12 [Concomitant]
     Active Substance: CYANOCOBALAMIN
  17. DIPHENHYDRAMINE. [Concomitant]
     Active Substance: DIPHENHYDRAMINE
  18. FOLIC ACID. [Concomitant]
     Active Substance: FOLIC ACID
  19. PROBIOTIC [Concomitant]
     Active Substance: PROBIOTICS NOS
  20. FISH OIL [Concomitant]
     Active Substance: FISH OIL

REACTIONS (1)
  - Headache [Unknown]
